FAERS Safety Report 17846122 (Version 2)
Quarter: 2020Q3

REPORT INFORMATION
  Report Type: Spontaneous
  Country: US (occurrence: US)
  Receive Date: 20200601
  Receipt Date: 20200630
  Transmission Date: 20201104
  Serious: Yes (Hospitalization, Other)
  Sender: FDA-Public Use
  Company Number: US-CELGENEUS-USA-20200507789

PATIENT
  Age: 44 Year
  Sex: Female

DRUGS (10)
  1. CLOBETASOL [Concomitant]
     Active Substance: CLOBETASOL
     Indication: RASH
     Dosage: .05 PERCENT
     Route: 065
     Dates: start: 2014
  2. FAMOTIDINE. [Concomitant]
     Active Substance: FAMOTIDINE
     Indication: PRODUCT USED FOR UNKNOWN INDICATION
     Dosage: 20 MILLIGRAM
     Route: 065
  3. AMLODIPINE [Concomitant]
     Active Substance: AMLODIPINE BESYLATE
     Indication: HYPERTENSION
     Dosage: 2.5 MILLIGRAM
     Route: 065
     Dates: start: 201902
  4. METOPROLOL. [Concomitant]
     Active Substance: METOPROLOL
     Indication: HYPERTENSION
     Dosage: 100 MILLIGRAM
     Route: 065
     Dates: start: 201801
  5. ABRAXANE [Suspect]
     Active Substance: PACLITAXEL
     Indication: NEUROENDOCRINE CARCINOMA METASTATIC
     Dosage: 121 MILLIGRAM
     Route: 041
     Dates: start: 20200316, end: 20200428
  6. CALCIUM [Concomitant]
     Active Substance: CALCIUM
     Indication: PROPHYLAXIS
     Dosage: 1 DOSAGE FORMS
     Route: 065
     Dates: start: 2019
  7. MULTIVITAMINS [Concomitant]
     Active Substance: VITAMINS
     Indication: PROPHYLAXIS
     Dosage: 1 DOSAGE FORMS
     Route: 065
     Dates: start: 2019
  8. ORIC?101. [Suspect]
     Active Substance: ORIC-101
     Indication: NEUROENDOCRINE CARCINOMA METASTATIC
     Dosage: 240 MILLIGRAM
     Route: 048
     Dates: start: 20200316, end: 20200502
  9. VITAMIN C [Concomitant]
     Active Substance: ASCORBIC ACID
     Indication: BLADDER PAIN
     Dosage: 1000 MILLIGRAM
     Route: 065
     Dates: start: 20200415
  10. SULFAMETHOXAZOLE W/TRIMETHOPRIM [Concomitant]
     Active Substance: SULFAMETHOXAZOLE\TRIMETHOPRIM
     Indication: PROPHYLAXIS
     Dosage: 800?160MG
     Route: 065

REACTIONS (1)
  - Liver injury [Recovered/Resolved]

NARRATIVE: CASE EVENT DATE: 20200512
